FAERS Safety Report 20671503 (Version 1)
Quarter: 2022Q2

REPORT INFORMATION
  Report Type: Spontaneous
  Country: CA (occurrence: CA)
  Receive Date: 20220404
  Receipt Date: 20220404
  Transmission Date: 20220721
  Serious: Yes (Hospitalization, Other)
  Sender: FDA-Public Use
  Company Number: CA-BoehringerIngelheim-2022-BI-163103

PATIENT
  Age: 68 Year
  Sex: Male
  Weight: 114 kg

DRUGS (13)
  1. EMPAGLIFLOZIN [Suspect]
     Active Substance: EMPAGLIFLOZIN
     Indication: Product used for unknown indication
     Route: 048
  2. MIRABEGRON [Suspect]
     Active Substance: MIRABEGRON
     Indication: Product used for unknown indication
  3. RISANKIZUMAB [Suspect]
     Active Substance: RISANKIZUMAB
     Indication: Psoriasis
     Route: 058
  4. MICARDIS [Concomitant]
     Active Substance: TELMISARTAN
     Indication: Product used for unknown indication
     Route: 048
  5. TIOTROPIUM [Concomitant]
     Active Substance: TIOTROPIUM
     Indication: Product used for unknown indication
  6. ASPIRIN [Concomitant]
     Active Substance: ASPIRIN
     Indication: Product used for unknown indication
  7. HYDROCHLOROTHIAZIDE [Concomitant]
     Active Substance: HYDROCHLOROTHIAZIDE
     Indication: Product used for unknown indication
     Route: 048
  8. INSULIN ASPART [Concomitant]
     Active Substance: INSULIN ASPART
     Indication: Product used for unknown indication
     Route: 058
  9. INSULIN HUMAN [Concomitant]
     Active Substance: INSULIN HUMAN
     Indication: Product used for unknown indication
     Dosage: 20.0 DOSAGE FORMS
  10. LANSOPRAZOLE [Concomitant]
     Active Substance: LANSOPRAZOLE
     Indication: Product used for unknown indication
     Dosage: CAPSULE, DELAYED RELEASE
     Route: 048
  11. LEVOTHYROXINE SODIUM [Concomitant]
     Active Substance: LEVOTHYROXINE SODIUM
     Indication: Product used for unknown indication
     Route: 048
  12. LIPITOR [Concomitant]
     Active Substance: ATORVASTATIN CALCIUM
     Indication: Product used for unknown indication
     Route: 048
  13. METFORMIN HYDROCHLORIDE/SITAGL IPTIN PHOSPHATE [Concomitant]
     Indication: Product used for unknown indication
     Route: 048

REACTIONS (22)
  - Aerococcus urinae infection [Recovered/Resolved]
  - Aortic dilatation [Recovered/Resolved]
  - Aortic stenosis [Recovered/Resolved]
  - Aortic valve incompetence [Recovered/Resolved]
  - Bundle branch block right [Recovered/Resolved]
  - Cardiac valve abscess [Recovered/Resolved]
  - Chills [Recovered/Resolved]
  - Chronic obstructive pulmonary disease [Recovered/Resolved]
  - Dyspnoea [Recovered/Resolved]
  - Fatigue [Recovered/Resolved]
  - Hyperglycaemia [Recovered/Resolved]
  - Left ventricular hypertrophy [Recovered/Resolved]
  - Malaise [Recovered/Resolved]
  - Micturition urgency [Recovered/Resolved]
  - Osteoarthritis [Recovered/Resolved]
  - Pain [Recovered/Resolved]
  - Pollakiuria [Recovered/Resolved]
  - Prosthetic valve endocarditis [Recovered/Resolved]
  - Pyrexia [Recovered/Resolved]
  - Right ventricular dysfunction [Recovered/Resolved]
  - Aortic dilatation [Recovered/Resolved]
  - Weight decreased [Recovered/Resolved]
